FAERS Safety Report 5461030-4 (Version None)
Quarter: 2007Q3

REPORT INFORMATION
  Report Type: 
  Country: None (occurrence: None)
  Receive Date: 20070822
  Receipt Date: 20060927
  Transmission Date: 20080115
  Serious: Yes (Other)
  Sender: FDA-Public Use
  Company Number: 2006117340

PATIENT
  Age: 57 Year
  Sex: Male
  Weight: 117.9352 kg

DRUGS (2)
  1. NORVASC [Suspect]
     Indication: BLOOD PRESSURE ABNORMAL
     Dosage: 10 MG (10 MG, 1IN 1 D)
  2. ATACAND [Suspect]
     Dosage: 32 MG (32 MG, 1 IN 1 D)

REACTIONS (1)
  - GINGIVAL HYPERPLASIA [None]
